FAERS Safety Report 23292868 (Version 2)
Quarter: 2023Q4

REPORT INFORMATION
  Report Type: Report from Study
  Country: IT (occurrence: IT)
  Receive Date: 20231213
  Receipt Date: 20231229
  Transmission Date: 20240109
  Serious: Yes (Other)
  Sender: FDA-Public Use
  Company Number: None

PATIENT

DRUGS (4)
  1. PEGASPARGASE [Suspect]
     Active Substance: PEGASPARGASE
     Indication: B-cell type acute leukaemia
     Dosage: 1417 U/L ON 09 AND 23-OCT-2023
     Route: 042
     Dates: start: 20231009, end: 20231023
  2. PURINETHOL [Suspect]
     Active Substance: MERCAPTOPURINE
     Indication: B-cell type acute leukaemia
     Dosage: 37.5 MG, QD
     Route: 048
     Dates: start: 20231104, end: 20231117
  3. CYTARABINE [Suspect]
     Active Substance: CYTARABINE
     Indication: B-cell type acute leukaemia
     Dosage: 42.50 MG FROM 06-NOV-2023 TO 09-NOV-2023 AND 13-NOV-2023 TO 16-NOV-2023
     Route: 042
     Dates: start: 20231106, end: 20231116
  4. DECADRON [Concomitant]
     Active Substance: DEXAMETHASONE
     Indication: B-cell type acute leukaemia
     Dosage: 3 MG (4 CPS OF 0.75 MG), BID
     Route: 048
     Dates: start: 20231119

REACTIONS (4)
  - Hyperbilirubinaemia [Recovered/Resolved]
  - Anaemia [Recovered/Resolved]
  - Thrombocytopenia [Recovered/Resolved]
  - Hypoglycaemia [Recovered/Resolved]

NARRATIVE: CASE EVENT DATE: 20231106
